FAERS Safety Report 5070669-X (Version None)
Quarter: 2006Q3

REPORT INFORMATION
  Report Type: 
  Country: None (occurrence: None)
  Receive Date: 20060804
  Receipt Date: 20050908
  Transmission Date: 20061208
  Serious: No
  Sender: FDA-Public Use
  Company Number: US-GLAXOSMITHKLINE-A0573405A

PATIENT
  Age: 41 Year
  Sex: Female

DRUGS (1)
  1. EQUATE NICOTINE GUM 4MG [Suspect]
     Dates: start: 20050825, end: 20050825

REACTIONS (4)
  - CHEST DISCOMFORT [None]
  - CHEST PAIN [None]
  - MALAISE [None]
  - SALIVARY HYPERSECRETION [None]
